FAERS Safety Report 7035443-3 (Version None)
Quarter: 2010Q4

REPORT INFORMATION
  Report Type: 
  Country: None (occurrence: None)
  Receive Date: 20101008
  Receipt Date: 20100927
  Transmission Date: 20110411
  Serious: Yes (Hospitalization)
  Sender: FDA-Public Use
  Company Number: TW-PFIZER INC-2010123257

PATIENT
  Age: 54 Year
  Sex: Female

DRUGS (4)
  1. EXEMESTANE [Suspect]
     Indication: BREAST CANCER
     Dosage: 25 MG, 1X/DAY
     Route: 048
     Dates: start: 20100819, end: 20100831
  2. EXEMESTANE [Suspect]
     Dosage: 25 MG, 1X/DAY
     Route: 048
     Dates: start: 20100907, end: 20100909
  3. DASATINIB VS PLACEBO [Suspect]
     Indication: BREAST CANCER
     Dosage: 50 MG, 2X/DAY
     Route: 048
     Dates: start: 20100819, end: 20100831
  4. DASATINIB VS PLACEBO [Suspect]
     Dosage: 70 MG, 1X/DAY
     Route: 048
     Dates: start: 20100907, end: 20100909

REACTIONS (2)
  - HEPATIC FUNCTION ABNORMAL [None]
  - HEPATITIS [None]
